FAERS Safety Report 24081039 (Version 3)
Quarter: 2024Q3

REPORT INFORMATION
  Report Type: Spontaneous
  Country: CN (occurrence: CN)
  Receive Date: 20240711
  Receipt Date: 20240808
  Transmission Date: 20241016
  Serious: Yes (Hospitalization, Other)
  Sender: MERCK
  Company Number: CN-MIRATI-MT2024CT06410

PATIENT
  Age: 75 Year
  Sex: Male
  Weight: 55 kg

DRUGS (4)
  1. PEMBROLIZUMAB [Suspect]
     Active Substance: PEMBROLIZUMAB
     Indication: Non-small cell lung cancer
     Dosage: 200 MG, Q3W
     Route: 048
     Dates: start: 20221021, end: 20221111
  2. ADAGRASIB [Suspect]
     Active Substance: ADAGRASIB
     Indication: Non-small cell lung cancer
     Dosage: 400 MG, BID
     Route: 048
     Dates: start: 20221021
  3. ADAGRASIB [Suspect]
     Active Substance: ADAGRASIB
     Dosage: 600 MG, QD
     Route: 048
     Dates: end: 20240329
  4. PHOSPHOLIPID [Concomitant]
     Active Substance: PHOSPHOLIPID
     Indication: Gamma-glutamyltransferase increased
     Dosage: 228 MG, TID
     Route: 048
     Dates: start: 20240104

REACTIONS (5)
  - Brain oedema [Recovered/Resolved]
  - Malignant neoplasm progression [Unknown]
  - Thrombocytopenia [Unknown]
  - Abdominal distension [Unknown]
  - Incorrect route of product administration [Unknown]

NARRATIVE: CASE EVENT DATE: 20240308
